FAERS Safety Report 13137559 (Version 2)
Quarter: 2017Q4

REPORT INFORMATION
  Report Type: Report from Study
  Country: NL (occurrence: NL)
  Receive Date: 20170123
  Receipt Date: 20171129
  Transmission Date: 20180320
  Serious: Yes (Hospitalization)
  Sender: FDA-Public Use
  Company Number: NL-ROCHE-1880819

PATIENT
  Age: 77 Year
  Sex: Male

DRUGS (2)
  1. COBIMETINIB. [Suspect]
     Active Substance: COBIMETINIB
     Indication: SALIVARY GLAND CANCER
     Route: 048
     Dates: start: 20170105
  2. VEMURAFENIB. [Suspect]
     Active Substance: VEMURAFENIB
     Indication: SALIVARY GLAND CANCER
     Route: 048
     Dates: start: 20170105

REACTIONS (1)
  - Acute kidney injury [Recovered/Resolved]

NARRATIVE: CASE EVENT DATE: 20170116
